FAERS Safety Report 21132452 (Version 2)
Quarter: 2022Q3

REPORT INFORMATION
  Report Type: Spontaneous
  Country: US (occurrence: US)
  Receive Date: 20220726
  Receipt Date: 20220728
  Transmission Date: 20221026
  Serious: Yes (Death, Other)
  Sender: FDA-Public Use
  Company Number: US-SA-SAC20220725001115

PATIENT
  Age: 65 Year
  Sex: Male

DRUGS (2)
  1. ZANTAC [Suspect]
     Active Substance: RANITIDINE HYDROCHLORIDE
     Indication: Abdominal discomfort
     Dosage: 150 MG, QD
     Dates: start: 200501, end: 201011
  2. ZANTAC [Suspect]
     Active Substance: RANITIDINE HYDROCHLORIDE
     Indication: Dyspepsia

REACTIONS (6)
  - Cervix carcinoma [Fatal]
  - Renal cancer [Fatal]
  - Bladder cancer [Fatal]
  - Lung neoplasm malignant [Fatal]
  - Bone cancer [Fatal]
  - Spinal cord neoplasm [Fatal]

NARRATIVE: CASE EVENT DATE: 20200201
